FAERS Safety Report 23896654 (Version 1)
Quarter: 2024Q2

REPORT INFORMATION
  Report Type: Spontaneous
  Country: CA (occurrence: CA)
  Receive Date: 20240524
  Receipt Date: 20240524
  Transmission Date: 20240716
  Serious: Yes (Hospitalization)
  Sender: FDA-Public Use
  Company Number: CA-VERTEX PHARMACEUTICALS-2023-015320

PATIENT
  Sex: Male

DRUGS (4)
  1. TRIKAFTA [Suspect]
     Active Substance: ELEXACAFTOR\IVACAFTOR\TEZACAFTOR
     Indication: Cystic fibrosis
     Dosage: FREQ UNKNOWN
     Route: 048
     Dates: start: 202112, end: 20230927
  2. TRIKAFTA [Suspect]
     Active Substance: ELEXACAFTOR\IVACAFTOR\TEZACAFTOR
     Dosage: 1 ORANGE CAP AM
     Route: 048
     Dates: start: 20231221
  3. TRIKAFTA [Suspect]
     Active Substance: ELEXACAFTOR\IVACAFTOR\TEZACAFTOR
     Dosage: 2 ORANGE TABS IN AM
     Route: 048
  4. PULMOZYME [Concomitant]
     Active Substance: DORNASE ALFA

REACTIONS (11)
  - White blood cell count increased [Unknown]
  - Inflammatory bowel disease [Recovered/Resolved]
  - Blood bilirubin increased [Recovered/Resolved]
  - Abdominal pain [Recovered/Resolved]
  - Alanine aminotransferase increased [Recovered/Resolved]
  - Aspartate aminotransferase increased [Recovered/Resolved]
  - Pulmonary function test decreased [Recovered/Resolved]
  - Gastrointestinal wall thickening [Recovered/Resolved]
  - Constipation [Recovered/Resolved]
  - SARS-CoV-2 test positive [Recovering/Resolving]
  - Hepatic steatosis [Not Recovered/Not Resolved]

NARRATIVE: CASE EVENT DATE: 20230101
